FAERS Safety Report 11741882 (Version 1)
Quarter: 2015Q4

REPORT INFORMATION
  Report Type: Report from Study
  Country: CN (occurrence: CN)
  Receive Date: 20151116
  Receipt Date: 20151116
  Transmission Date: 20160304
  Serious: Yes (Other)
  Sender: FDA-Public Use
  Company Number: CN-BRISTOL-MYERS SQUIBB COMPANY-BMS-2015-074470

PATIENT
  Age: 53 Year
  Sex: Male

DRUGS (3)
  1. CETUXIMAB [Suspect]
     Active Substance: CETUXIMAB
     Indication: RECTAL CANCER
     Dosage: 400 MG/M2, Q2WK
     Route: 065
     Dates: start: 201508, end: 20151006
  2. BEVACIZUMAB [Concomitant]
     Active Substance: BEVACIZUMAB
     Indication: RECTAL CANCER
     Dosage: UNK
     Route: 065
     Dates: start: 20150922
  3. DOCETAXEL. [Concomitant]
     Active Substance: DOCETAXEL
     Indication: RECTAL CANCER
     Dosage: UNK
     Route: 065
     Dates: start: 20150922

REACTIONS (2)
  - Intestinal obstruction [Recovered/Resolved]
  - Rash [Recovered/Resolved]

NARRATIVE: CASE EVENT DATE: 201508
